FAERS Safety Report 5006731-7 (Version None)
Quarter: 2006Q2

REPORT INFORMATION
  Report Type: 
  Country: None (occurrence: None)
  Receive Date: 20060516
  Receipt Date: 20060502
  Transmission Date: 20061013
  Serious: No
  Sender: FDA-Public Use
  Company Number: 2006-142197-NL

PATIENT
  Age: 82 Year
  Sex: Female

DRUGS (1)
  1. DANAPAROID SODIUM [Suspect]
     Indication: HEPARIN-INDUCED THROMBOCYTOPENIA

REACTIONS (1)
  - THROMBOCYTOPENIA [None]
